FAERS Safety Report 6327904-7 (Version None)
Quarter: 2009Q3

REPORT INFORMATION
  Report Type: 
  Country: None (occurrence: None)
  Receive Date: 20090825
  Receipt Date: 20081118
  Transmission Date: 20100115
  Serious: No
  Sender: FDA-Public Use
  Company Number: US-ABBOTT-08P-163-0460096-00

PATIENT
  Sex: Female
  Weight: 45.4 kg

DRUGS (4)
  1. SYNTHROID [Suspect]
     Indication: HYPOTHYROIDISM
     Route: 048
     Dates: start: 20080101, end: 20080821
  2. SYNTHROID [Suspect]
     Dosage: 6 IN 1 WK, SKIPS SUNDAYS
     Dates: start: 20080820
  3. THYROID TAB [Concomitant]
     Indication: THYROID DISORDER
     Route: 048
  4. HERBAL [Concomitant]
     Indication: PHYTOTHERAPY
     Route: 048

REACTIONS (6)
  - ALOPECIA [None]
  - DRUG INEFFECTIVE [None]
  - DRY SKIN [None]
  - FATIGUE [None]
  - FEELING HOT [None]
  - HYPERHIDROSIS [None]
